FAERS Safety Report 5935768-6 (Version None)
Quarter: 2008Q4

REPORT INFORMATION
  Report Type: 
  Country: None (occurrence: None)
  Receive Date: 20081030
  Receipt Date: 20081023
  Transmission Date: 20090506
  Serious: Yes (Hospitalization)
  Sender: FDA-Public Use
  Company Number: SE-WATSON-2008-06324

PATIENT
  Age: 18 Year
  Sex: Male

DRUGS (2)
  1. PREDNISOLONE ACETATE [Suspect]
     Indication: COLITIS ULCERATIVE
     Dosage: 10 MG, DAILY
     Route: 048
  2. PREDNISOLONE ACETATE [Suspect]
     Dosage: 40 MG, DAILY
     Route: 048

REACTIONS (1)
  - CEREBRAL VENOUS THROMBOSIS [None]
